FAERS Safety Report 4687507-7 (Version None)
Quarter: 2005Q2

REPORT INFORMATION
  Report Type: 
  Country: None (occurrence: None)
  Receive Date: 20050609
  Receipt Date: 20021209
  Transmission Date: 20051028
  Serious: Yes (Hospitalization)
  Sender: FDA-Public Use
  Company Number: RO-SANOFI-SYNTHELABO-D01200201069

PATIENT
  Sex: Male
  Weight: 81 kg

DRUGS (3)
  1. ALFUZOSIN [Suspect]
     Route: 048
     Dates: start: 20021203, end: 20041122
  2. ENALAPRIL MALEATE [Concomitant]
     Dosage: 10 MG
     Route: 065
     Dates: start: 19980101
  3. ACETYLSALICYLIC ACID [Concomitant]
     Dosage: 75 MG
     Route: 065
     Dates: start: 19980101

REACTIONS (1)
  - GASTRITIS HYPERTROPHIC [None]
